FAERS Safety Report 6982702-6 (Version None)
Quarter: 2010Q3

REPORT INFORMATION
  Report Type: 
  Country: None (occurrence: None)
  Receive Date: 20100914
  Receipt Date: 20100324
  Transmission Date: 20110219
  Serious: No
  Sender: FDA-Public Use
  Company Number: US-PFIZER INC-2010038597

PATIENT
  Sex: Female
  Weight: 86.168 kg

DRUGS (6)
  1. LYRICA [Suspect]
     Indication: NEUROPATHY PERIPHERAL
     Dosage: 50 MG, DAILY
     Route: 048
     Dates: start: 20100101
  2. LYRICA [Suspect]
     Dosage: 75 MG, 1X/DAY
     Route: 048
     Dates: start: 20100318
  3. LISINOPRIL [Concomitant]
     Indication: HYPERTENSION
     Dosage: UNK
  4. SPIRIVA [Concomitant]
     Indication: EMPHYSEMA
     Dosage: UNK
  5. FORADIL [Concomitant]
     Indication: EMPHYSEMA
     Dosage: UNK
  6. CELEXA [Concomitant]
     Dosage: UNK

REACTIONS (3)
  - INCORRECT DRUG ADMINISTRATION RATE [None]
  - INSOMNIA [None]
  - SOMNAMBULISM [None]
